FAERS Safety Report 15477764 (Version 1)
Quarter: 2018Q4

REPORT INFORMATION
  Report Type: Spontaneous
  Country: ES (occurrence: ES)
  Receive Date: 20181009
  Receipt Date: 20181009
  Transmission Date: 20190205
  Serious: Yes (Other)
  Sender: FDA-Public Use
  Company Number: ES-FERRINGPH-2018FE05435

PATIENT

DRUGS (2)
  1. PROGESTERONE. [Suspect]
     Active Substance: PROGESTERONE
     Indication: ASSISTED FERTILISATION
     Dosage: 200 MG, DAILY
     Route: 065
  2. ESTROGEN [Suspect]
     Active Substance: ESTROGENS
     Indication: OVULATION INDUCTION
     Dosage: HIGH CONCENTRATION
     Route: 065

REACTIONS (1)
  - Benign ovarian tumour [Recovered/Resolved]
